FAERS Safety Report 11068082 (Version 2)
Quarter: 2015Q2

REPORT INFORMATION
  Report Type: Report from Study
  Country: ID (occurrence: ID)
  Receive Date: 20150427
  Receipt Date: 20150529
  Transmission Date: 20150821
  Serious: Yes (Death, Hospitalization, Other)
  Sender: FDA-Public Use
  Company Number: ID-ROCHE-1454594

PATIENT
  Age: 44 Year
  Sex: Female

DRUGS (1)
  1. AVASTIN [Suspect]
     Active Substance: BEVACIZUMAB
     Indication: TRIPLE NEGATIVE BREAST CANCER
     Route: 065

REACTIONS (10)
  - Herpes virus infection [Unknown]
  - Nausea [Unknown]
  - General physical health deterioration [Fatal]
  - Anaemia [Unknown]
  - Vomiting [Unknown]
  - Metastases to lung [Fatal]
  - Metastases to liver [Fatal]
  - Dyspnoea [Not Recovered/Not Resolved]
  - Leukopenia [Not Recovered/Not Resolved]
  - Asthenia [Unknown]
